FAERS Safety Report 8807085 (Version 1)
Quarter: 2012Q4

REPORT INFORMATION
  Report Type: 
  Country: US (occurrence: US)
  Receive Date: 20120925
  Receipt Date: 20120925
  Transmission Date: 20130627
  Serious: Yes (Other)
  Sender: FDA-Public Use
  Company Number: US-TEVA-360625USA

PATIENT
  Sex: Female

DRUGS (1)
  1. QVAR [Suspect]
     Dates: end: 20120823

REACTIONS (3)
  - Pharyngeal oedema [Unknown]
  - Pruritus [Unknown]
  - Hypersensitivity [Unknown]
